FAERS Safety Report 9504364 (Version 1)
Quarter: 2013Q3

REPORT INFORMATION
  Report Type: Report from Study
  Country: UG (occurrence: UG)
  Receive Date: 20130906
  Receipt Date: 20130906
  Transmission Date: 20140515
  Serious: Yes (Life-Threatening, Hospitalization)
  Sender: FDA-Public Use
  Company Number: UG-ABBOTT-13P-165-1143147-00

PATIENT
  Age: 41 Year
  Sex: Female

DRUGS (3)
  1. ALUVIA [Suspect]
     Indication: HIV INFECTION
     Dosage: UNKNOWN
     Route: 048
     Dates: start: 20100624
  2. RALTEGRAVIR [Concomitant]
     Indication: HIV INFECTION
     Dosage: UNKNOWN
     Route: 065
     Dates: start: 20100624
  3. COTRIMAXAZOLE [Concomitant]
     Indication: PRODUCT USED FOR UNKNOWN INDICATION
     Dosage: UNKNOWN
     Route: 065
     Dates: start: 20030213

REACTIONS (3)
  - Diabetes mellitus [Recovered/Resolved]
  - Uterine leiomyoma [Recovered/Resolved]
  - Vaginal haemorrhage [Recovered/Resolved]
